FAERS Safety Report 7280468-6 (Version None)
Quarter: 2011Q1

REPORT INFORMATION
  Report Type: 
  Country: None (occurrence: None)
  Receive Date: 20110208
  Receipt Date: 20110127
  Transmission Date: 20110831
  Serious: Yes (Other)
  Sender: FDA-Public Use
  Company Number: US-ROCHE-756558

PATIENT
  Sex: Male

DRUGS (4)
  1. FLUROBLASTIN [Suspect]
     Dosage: DOSE FORM: INTRAVENTRICULAR
     Route: 042
  2. HERCEPTIN [Suspect]
     Dosage: DOSE FORM: INTRAVENTRICULAR
     Route: 042
  3. ELOXATIN [Suspect]
     Dosage: DOSE FORM: INTRAVENTRICULAR THERAPY DATES: 1 DAY
     Route: 042
  4. FOLINIC ACID [Suspect]
     Route: 065

REACTIONS (3)
  - RETINAL HAEMORRHAGE [None]
  - EYE HAEMORRHAGE [None]
  - PAPILLOEDEMA [None]
